FAERS Safety Report 5235924-9 (Version None)
Quarter: 2007Q1

REPORT INFORMATION
  Report Type: 
  Country: None (occurrence: None)
  Receive Date: 20061208
  Receipt Date: 20060420
  Transmission Date: 20070707
  Serious: Yes (Other)
  Sender: FDA-Public Use
  Company Number: 2006UW06980

PATIENT
  Age: 68 Year
  Sex: Female
  Weight: 104.32 kg

DRUGS (5)
  1. CRESTOR [Suspect]
     Indication: BLOOD CHOLESTEROL INCREASED
     Dosage: 5 MG PO
     Route: 048
     Dates: start: 20060201, end: 20060101
  2. CRESTOR [Suspect]
     Indication: BLOOD CHOLESTEROL INCREASED
     Dosage: 10 MG PO
     Route: 048
     Dates: start: 20060101, end: 20060401
  3. THEO-DUR [Concomitant]
  4. PRENDISONE [Concomitant]
  5. AZMACORT [Concomitant]

REACTIONS (4)
  - CHEILITIS [None]
  - GLOSSITIS [None]
  - STOMATITIS [None]
  - TONGUE DISORDER [None]
